FAERS Safety Report 9460582 (Version 1)
Quarter: 2013Q3

REPORT INFORMATION
  Report Type: Report from Study
  Country: JP (occurrence: JP)
  Receive Date: 20130815
  Receipt Date: 20130815
  Transmission Date: 20140515
  Serious: Yes (Other)
  Sender: FDA-Public Use
  Company Number: JP-GILEAD-2013-0081438

PATIENT
  Sex: Male

DRUGS (7)
  1. AMBRISENTAN [Suspect]
     Dosage: 10MG PER DAY
     Route: 048
     Dates: start: 20110726
  2. AMBRISENTAN [Suspect]
     Dosage: 7.5MG PER DAY
     Route: 048
     Dates: start: 20110615, end: 20110725
  3. AMBRISENTAN [Suspect]
     Dosage: 5MG PER DAY
     Route: 048
     Dates: start: 20110509, end: 20110614
  4. AMBRISENTAN [Suspect]
     Dosage: 2.5MG PER DAY
     Route: 048
     Dates: start: 20110425, end: 20110508
  5. HALFDIGOXIN [Concomitant]
     Indication: CARDIAC FAILURE
     Route: 048
  6. REVATIO [Concomitant]
     Indication: PULMONARY ARTERIAL HYPERTENSION
     Route: 048
  7. PROCYLIN [Concomitant]
     Indication: PULMONARY ARTERIAL HYPERTENSION
     Route: 048

REACTIONS (3)
  - Rhinitis allergic [Recovered/Resolved]
  - Headache [Recovered/Resolved]
  - Pneumonia [Recovered/Resolved]
